FAERS Safety Report 8369662-0 (Version None)
Quarter: 2012Q2

REPORT INFORMATION
  Report Type: 
  Country: None (occurrence: None)
  Receive Date: 20120518
  Receipt Date: 20120510
  Transmission Date: 20120825
  Serious: Yes (Hospitalization, Other)
  Sender: FDA-Public Use
  Company Number: AU-ASTELLAS-2012JP004229

PATIENT
  Age: 57 Year
  Sex: Male

DRUGS (5)
  1. TACROLIMUS [Suspect]
     Route: 065
  2. MYCOPHENOLATE MOFETIL [Suspect]
     Indication: IMMUNOSUPPRESSION
     Dosage: 1000 MG, BID
     Route: 065
  3. TACROLIMUS [Suspect]
     Indication: IMMUNOSUPPRESSION
     Dosage: 0.1 MG/KG, BID
     Route: 065
  4. PREDNISOLONE [Suspect]
     Indication: IMMUNOSUPPRESSION
     Route: 065
  5. BASILIXIMAB [Suspect]
     Indication: IMMUNOSUPPRESSION
     Route: 065

REACTIONS (11)
  - KIDNEY TRANSPLANT REJECTION [None]
  - CLOSTRIDIAL INFECTION [None]
  - ATYPICAL MYCOBACTERIAL PNEUMONIA [None]
  - MICROSPORIDIA INFECTION [None]
  - FUNGAEMIA [None]
  - TUBULOINTERSTITIAL NEPHRITIS [None]
  - FUNGAL SKIN INFECTION [None]
  - PNEUMONIA [None]
  - DRUG INEFFECTIVE [None]
  - FUNGAL INFECTION [None]
  - CYTOMEGALOVIRUS COLITIS [None]
